FAERS Safety Report 9888019 (Version 2)
Quarter: 2014Q1

REPORT INFORMATION
  Report Type: Spontaneous
  Country: KR (occurrence: None)
  Receive Date: 20140207
  Receipt Date: 20140218
  Transmission Date: 20141002
  Serious: Yes (Other)
  Sender: FDA-Public Use
  Company Number: JP-2014-10437

PATIENT
  Age: 86 Year
  Sex: Female

DRUGS (1)
  1. OPC-13013 [Suspect]
     Indication: PERIPHERAL ARTERIAL OCCLUSIVE DISEASE
     Dosage: 200 MG MILLIGRAM(S), DAILY DOSE, ORAL
     Route: 048
     Dates: start: 20131225, end: 20140121

REACTIONS (1)
  - Prothrombin time prolonged [None]
